FAERS Safety Report 4711366-7 (Version None)
Quarter: 2005Q3

REPORT INFORMATION
  Report Type: 
  Country: None (occurrence: None)
  Receive Date: 20050708
  Receipt Date: 20050627
  Transmission Date: 20060218
  Serious: Yes (Other)
  Sender: FDA-Public Use
  Company Number: 2005078888

PATIENT
  Age: 67 Year
  Sex: Female
  Weight: 51.2565 kg

DRUGS (6)
  1. CELEBREX [Suspect]
     Indication: OSTEOARTHRITIS
     Dosage: (200 MG, UNKNOWN), ORAL
     Route: 048
     Dates: start: 20000101
  2. CELEBREX [Suspect]
     Indication: RHEUMATOID ARTHRITIS
     Dosage: (200 MG, UNKNOWN), ORAL
     Route: 048
     Dates: start: 20000101
  3. CELEBREX [Suspect]
     Indication: SYSTEMIC LUPUS ERYTHEMATOSUS
     Dosage: (200 MG, UNKNOWN), ORAL
     Route: 048
     Dates: start: 20000101
  4. SALSALATE (SALSALATE) [Concomitant]
  5. PREDNISONE [Concomitant]
  6. PLAQUENIL [Concomitant]

REACTIONS (6)
  - BODY HEIGHT DECREASED [None]
  - DYSPHONIA [None]
  - MULTIPLE FRACTURES [None]
  - PHARYNGITIS [None]
  - THROAT IRRITATION [None]
  - VOCAL CORD INFLAMMATION [None]
